FAERS Safety Report 9500413 (Version 1)
Quarter: 2013Q3

REPORT INFORMATION
  Report Type: Spontaneous
  Country: US (occurrence: None)
  Receive Date: 20130904
  Receipt Date: 20130904
  Transmission Date: 20140515
  Serious: No
  Sender: FDA-Public Use
  Company Number: None

PATIENT
  Age: 62 Year
  Sex: Female
  Weight: 103.42 kg

DRUGS (3)
  1. NORCO 10MG WATSON, MERCK [Suspect]
     Indication: INTERVERTEBRAL DISC DISORDER
     Route: 048
     Dates: start: 20130304, end: 20130903
  2. NORCO 10MG WATSON, MERCK [Suspect]
     Indication: BACK DISORDER
     Route: 048
     Dates: start: 20130304, end: 20130903
  3. NORCO 10MG WATSON, MERCK [Suspect]
     Indication: ARTHROPATHY
     Route: 048
     Dates: start: 20130304, end: 20130903

REACTIONS (2)
  - Depression [None]
  - Anger [None]
